FAERS Safety Report 4576669-8 (Version None)
Quarter: 2005Q1

REPORT INFORMATION
  Report Type: 
  Country: None (occurrence: None)
  Receive Date: 20050210
  Receipt Date: 20050203
  Transmission Date: 20050727
  Serious: Yes (Other)
  Sender: FDA-Public Use
  Company Number: PHEH2005US01637

PATIENT
  Sex: Female

DRUGS (6)
  1. LOPRESSOR [Suspect]
     Dosage: 12.5 MG, UNK
  2. LOPRESSOR [Suspect]
     Dosage: 50 MG, UNK
  3. NITROGLYCERIN [Suspect]
     Indication: ANGINA PECTORIS
     Dosage: 0.05 MG/H
     Route: 062
     Dates: end: 20050101
  4. ASPIRIN [Concomitant]
  5. DIOVAN [Suspect]
     Dosage: 80 MG, QD
     Route: 048
  6. DIOVAN [Suspect]
     Dosage: 40 MG, QD
     Route: 048

REACTIONS (4)
  - BLOOD PRESSURE DECREASED [None]
  - DIZZINESS [None]
  - MEDICATION ERROR [None]
  - SYNCOPE [None]
